FAERS Safety Report 15530813 (Version 1)
Quarter: 2018Q4

REPORT INFORMATION
  Report Type: Spontaneous
  Country: US (occurrence: US)
  Receive Date: 20181018
  Receipt Date: 20181018
  Transmission Date: 20190205
  Serious: No
  Sender: FDA-Public Use
  Company Number: US-AMGEN-USASP2018145330

PATIENT
  Age: 75 Year
  Sex: Female

DRUGS (5)
  1. TRAMADOL. [Concomitant]
     Active Substance: TRAMADOL
  2. ENBREL [Suspect]
     Active Substance: ETANERCEPT
     Indication: RHEUMATOID ARTHRITIS
     Dosage: 50 MG, QWK
     Route: 065
     Dates: start: 201805, end: 2018
  3. AZATHIOPRINE. [Concomitant]
     Active Substance: AZATHIOPRINE
     Dosage: UNK UNK, AS NECESSARY
  4. ATENOLOL. [Concomitant]
     Active Substance: ATENOLOL
     Dosage: UNK UNK, AS NECESSARY
  5. ENBREL [Suspect]
     Active Substance: ETANERCEPT
     Dosage: 50 MG, QWK
     Route: 065
     Dates: start: 201809

REACTIONS (3)
  - Hypertension [Unknown]
  - Bronchitis [Unknown]
  - Wrong technique in product usage process [Unknown]

NARRATIVE: CASE EVENT DATE: 2018
